FAERS Safety Report 8184822-X (Version None)
Quarter: 2012Q1

REPORT INFORMATION
  Report Type: 
  Country: None (occurrence: None)
  Receive Date: 20120305
  Receipt Date: 20120227
  Transmission Date: 20120608
  Serious: Yes (Other)
  Sender: FDA-Public Use
  Company Number: US-BAYER-2012-019574

PATIENT
  Age: 30 Year
  Sex: Female

DRUGS (1)
  1. YAZ [Suspect]
     Indication: PRODUCT USED FOR UNKNOWN INDICATION
     Dosage: UNK
     Dates: start: 20071001, end: 20100201

REACTIONS (5)
  - GALLBLADDER DISORDER [None]
  - PAIN [None]
  - ANXIETY [None]
  - INJURY [None]
  - PSYCHIATRIC SYMPTOM [None]
